FAERS Safety Report 6822389-6 (Version None)
Quarter: 2010Q3

REPORT INFORMATION
  Report Type: 
  Country: None (occurrence: None)
  Receive Date: 20100708
  Receipt Date: 20100701
  Transmission Date: 20110219
  Serious: Yes (Death, Other)
  Sender: FDA-Public Use
  Company Number: PHHY2010ZA30322

PATIENT
  Sex: Male
  Weight: 58.8 kg

DRUGS (2)
  1. GLEEVEC [Suspect]
     Indication: CHRONIC MYELOID LEUKAEMIA
     Dosage: 600 MG, UNK
     Dates: start: 20090622
  2. TRAMAL [Concomitant]
     Indication: PAIN
     Dosage: 50 MG, UNK
     Dates: start: 20090801

REACTIONS (5)
  - ASTHENIA [None]
  - DEATH [None]
  - FATIGUE [None]
  - HAEMOGLOBIN DECREASED [None]
  - PALLOR [None]
